FAERS Safety Report 20741555 (Version 3)
Quarter: 2022Q3

REPORT INFORMATION
  Report Type: Spontaneous
  Country: US (occurrence: US)
  Receive Date: 20220422
  Receipt Date: 20220719
  Transmission Date: 20221027
  Serious: Yes (Hospitalization)
  Sender: FDA-Public Use
  Company Number: US-GW PHARMA-2022-US-012443

PATIENT
  Age: 26 Year

DRUGS (2)
  1. EPIDIOLEX [Suspect]
     Active Substance: CANNABIDIOL
     Indication: Seizure
     Dosage: 6 MILLILITER, BID
  2. INSULIN NOS [Concomitant]
     Active Substance: INSULIN NOS
     Indication: Type 1 diabetes mellitus
     Dosage: UNK

REACTIONS (4)
  - COVID-19 [Unknown]
  - Nausea [Unknown]
  - Bronchitis [Unknown]
  - Vomiting [Unknown]

NARRATIVE: CASE EVENT DATE: 20220401
